FAERS Safety Report 13241996 (Version 1)
Quarter: 2017Q1

REPORT INFORMATION
  Report Type: Spontaneous
  Country: US (occurrence: US)
  Receive Date: 20170217
  Receipt Date: 20170217
  Transmission Date: 20170428
  Serious: No
  Sender: FDA-Public Use
  Company Number: US-009507513-1702USA004236

PATIENT
  Sex: Female
  Weight: 83.9 kg

DRUGS (1)
  1. NEXPLANON [Suspect]
     Active Substance: ETONOGESTREL
     Indication: CONTRACEPTION
     Dosage: 1 DF, EVERY THREE YEARS IN LEFT ARM
     Route: 059
     Dates: start: 201607

REACTIONS (11)
  - Rash generalised [Unknown]
  - Rash pruritic [Unknown]
  - Ocular hyperaemia [Unknown]
  - Nausea [Unknown]
  - Amenorrhoea [Recovered/Resolved]
  - Menstruation normal [Unknown]
  - Implant site rash [Unknown]
  - Nasopharyngitis [Unknown]
  - Eye swelling [Unknown]
  - Rash erythematous [Unknown]
  - Pyrexia [Unknown]

NARRATIVE: CASE EVENT DATE: 2016
